FAERS Safety Report 15825151 (Version 1)
Quarter: 2019Q1

REPORT INFORMATION
  Report Type: Spontaneous
  Country: CN (occurrence: CN)
  Receive Date: 20190115
  Receipt Date: 20190115
  Transmission Date: 20190417
  Serious: Yes (Other)
  Sender: FDA-Public Use
  Company Number: CN-ROCHE-2241552

PATIENT
  Age: 39 Year
  Sex: Male

DRUGS (5)
  1. VINCRISTINE [Concomitant]
     Active Substance: VINCRISTINE
     Indication: PRIMARY MEDIASTINAL LARGE B-CELL LYMPHOMA
     Dosage: D1
     Route: 065
     Dates: start: 20161223
  2. ADRIAMYCIN [Concomitant]
     Active Substance: DOXORUBICIN HYDROCHLORIDE
     Indication: PRIMARY MEDIASTINAL LARGE B-CELL LYMPHOMA
     Dosage: D1
     Route: 065
     Dates: start: 20161223
  3. MABTHERA [Suspect]
     Active Substance: RITUXIMAB
     Indication: PRIMARY MEDIASTINAL LARGE B-CELL LYMPHOMA
     Dosage: D0
     Route: 065
     Dates: start: 20161223
  4. DEXAMETHASONE. [Concomitant]
     Active Substance: DEXAMETHASONE
     Indication: PRIMARY MEDIASTINAL LARGE B-CELL LYMPHOMA
     Dosage: D1-D5
     Route: 065
     Dates: start: 20161223
  5. CYCLOPHOSPHAMIDE. [Concomitant]
     Active Substance: CYCLOPHOSPHAMIDE
     Indication: PRIMARY MEDIASTINAL LARGE B-CELL LYMPHOMA
     Dosage: D1
     Route: 065
     Dates: start: 20161223

REACTIONS (8)
  - Atelectasis [Unknown]
  - Pneumonia [Unknown]
  - Embolism venous [Unknown]
  - Primary mediastinal large B-cell lymphoma [Unknown]
  - Prostatic calcification [Unknown]
  - Renal cyst [Unknown]
  - Pleural effusion [Unknown]
  - Hepatic cyst [Unknown]
